FAERS Safety Report 5706257-9 (Version None)
Quarter: 2008Q2

REPORT INFORMATION
  Report Type: 
  Country: None (occurrence: None)
  Receive Date: 20080415
  Receipt Date: 20080403
  Transmission Date: 20081010
  Serious: Yes (Hospitalization)
  Sender: FDA-Public Use
  Company Number: FR-BOEHRINGER INGELHEIM GMBH, GERMANY-2008-FF-00277FF

PATIENT

DRUGS (2)
  1. SPIRIVA [Suspect]
     Route: 055
  2. CORTICOIDS [Concomitant]

REACTIONS (1)
  - RASH PUSTULAR [None]
